FAERS Safety Report 4749153-6 (Version None)
Quarter: 2005Q3

REPORT INFORMATION
  Report Type: 
  Country: None (occurrence: None)
  Receive Date: 20050817
  Receipt Date: 20050804
  Transmission Date: 20060218
  Serious: Yes (Other)
  Sender: FDA-Public Use
  Company Number: 2005FR-00208

PATIENT
  Age: 68 Year
  Sex: Male

DRUGS (5)
  1. ASPIRIN [Suspect]
     Dosage: 75 MG, QS
  2. ISOSORBIDE DINITRATE [Concomitant]
  3. ATENOLOL [Concomitant]
  4. AMLODIPINE [Concomitant]
  5. SIMVASTATIN [Concomitant]

REACTIONS (7)
  - CHOROIDAL NEOVASCULARISATION [None]
  - HAEMORRHAGIC DIATHESIS [None]
  - MACULAR DEGENERATION [None]
  - MACULOPATHY [None]
  - PROTHROMBIN TIME PROLONGED [None]
  - RETINAL HAEMORRHAGE [None]
  - SCOTOMA [None]
